FAERS Safety Report 8450082-5 (Version None)
Quarter: 2012Q2

REPORT INFORMATION
  Report Type: 
  Country: None (occurrence: None)
  Receive Date: 20120620
  Receipt Date: 20120611
  Transmission Date: 20120825
  Serious: Yes (Other)
  Sender: FDA-Public Use
  Company Number: ZA-JNJFOC-20120606168

PATIENT
  Sex: Male

DRUGS (3)
  1. REVELLEX [Suspect]
     Route: 042
     Dates: start: 20120521
  2. REVELLEX [Suspect]
     Indication: CROHN'S DISEASE
     Route: 042
  3. AZAPRESS [Concomitant]
     Route: 065

REACTIONS (1)
  - OESOPHAGEAL CANDIDIASIS [None]
